FAERS Safety Report 18832758 (Version 4)
Quarter: 2021Q1

REPORT INFORMATION
  Report Type: Spontaneous
  Country: CA (occurrence: CA)
  Receive Date: 20210203
  Receipt Date: 20210224
  Transmission Date: 20210419
  Serious: Yes (Hospitalization)
  Sender: FDA-Public Use
  Company Number: CA-AKCEA THERAPEUTICS-2020IS001345

PATIENT
  Age: 88 Year
  Sex: Male

DRUGS (5)
  1. ISSD (INTEGRATED SYRINGE SAFETY DEVICE) [Suspect]
     Active Substance: DEVICE
  2. BABY ASPIRIN [Concomitant]
     Active Substance: ASPIRIN
  3. TEGSEDI [Suspect]
     Active Substance: INOTERSEN SODIUM
     Indication: HEREDITARY NEUROPATHIC AMYLOIDOSIS
     Route: 058
     Dates: start: 20200807
  4. TEGSEDI [Suspect]
     Active Substance: INOTERSEN SODIUM
     Route: 058
  5. TEGSEDI [Suspect]
     Active Substance: INOTERSEN SODIUM
     Route: 058

REACTIONS (34)
  - Constipation [Not Recovered/Not Resolved]
  - Peripheral swelling [Not Recovered/Not Resolved]
  - Electrolyte imbalance [Unknown]
  - Mean cell haemoglobin increased [Unknown]
  - Decreased appetite [Recovered/Resolved]
  - Vitamin A decreased [Unknown]
  - Mobility decreased [Not Recovered/Not Resolved]
  - Restlessness [Unknown]
  - Pain [Not Recovered/Not Resolved]
  - Haematocrit decreased [Unknown]
  - Red blood cell count decreased [Unknown]
  - Mean cell volume increased [Unknown]
  - Mean cell haemoglobin concentration increased [Recovered/Resolved]
  - Dysstasia [Not Recovered/Not Resolved]
  - Red blood cell target cells present [Not Recovered/Not Resolved]
  - General physical health deterioration [Not Recovered/Not Resolved]
  - Malaise [Not Recovered/Not Resolved]
  - Back pain [Not Recovered/Not Resolved]
  - Blood albumin decreased [Unknown]
  - Disorientation [Unknown]
  - Movement disorder [Unknown]
  - Macrocytosis [Unknown]
  - Walking aid user [Not Recovered/Not Resolved]
  - Injection site induration [Recovered/Resolved]
  - Asthenia [Not Recovered/Not Resolved]
  - Urine protein/creatinine ratio increased [Recovered/Resolved]
  - Hypersomnia [Not Recovered/Not Resolved]
  - Performance status decreased [Not Recovered/Not Resolved]
  - Confusional state [Unknown]
  - Myocardial necrosis marker increased [Unknown]
  - Hypoaesthesia [Recovering/Resolving]
  - Dysarthria [Unknown]
  - Haemoglobin decreased [Unknown]
  - Platelet count decreased [Unknown]

NARRATIVE: CASE EVENT DATE: 2020
